FAERS Safety Report 5996048-6 (Version None)
Quarter: 2008Q4

REPORT INFORMATION
  Report Type: 
  Country: None (occurrence: None)
  Receive Date: 20081212
  Receipt Date: 20081009
  Transmission Date: 20090506
  Serious: No
  Sender: FDA-Public Use
  Company Number: US-ABBOTT-08P-163-0480618-00

PATIENT
  Sex: Female
  Weight: 68.1 kg

DRUGS (6)
  1. HUMIRA [Suspect]
     Indication: ANKYLOSING SPONDYLITIS
     Route: 058
     Dates: start: 20080923
  2. TYLOX [Concomitant]
     Indication: ANKYLOSING SPONDYLITIS
     Dosage: 325/5MG AS NEEDED
     Route: 048
  3. VALIUM [Concomitant]
     Indication: ANKYLOSING SPONDYLITIS
     Route: 048
  4. VALIUM [Concomitant]
     Indication: MUSCLE SPASMS
  5. BIRTH CONTROL [Concomitant]
     Indication: CONTRACEPTION
     Route: 048
  6. DICLOFENAC SODIUM [Concomitant]
     Indication: ANTIINFLAMMATORY THERAPY
     Route: 048

REACTIONS (4)
  - INJECTION SITE ERYTHEMA [None]
  - INJECTION SITE IRRITATION [None]
  - INJECTION SITE NODULE [None]
  - INJECTION SITE WARMTH [None]
